FAERS Safety Report 6880905-2 (Version None)
Quarter: 2010Q3

REPORT INFORMATION
  Report Type: 
  Country: None (occurrence: None)
  Receive Date: 20100728
  Receipt Date: 20100716
  Transmission Date: 20110219
  Serious: Yes (Hospitalization)
  Sender: FDA-Public Use
  Company Number: BR-GENENTECH-302351

PATIENT
  Sex: Female
  Weight: 82 kg

DRUGS (5)
  1. RITUXIMAB [Suspect]
     Indication: RHEUMATOID ARTHRITIS
     Dosage: 1000 MG/ML, Q15D
     Route: 042
     Dates: start: 20090808, end: 20090826
  2. RITUXIMAB [Suspect]
     Dosage: 1000 MG/ML, Q15D
     Route: 042
     Dates: start: 20100503, end: 20100514
  3. PREDSIM [Concomitant]
     Indication: PRODUCT USED FOR UNKNOWN INDICATION
     Dosage: 5 MG, UNK
     Dates: start: 20080101
  4. AFRIN [Concomitant]
     Indication: PRODUCT USED FOR UNKNOWN INDICATION
     Dosage: UNK
     Dates: start: 20080101
  5. TYLEX [Concomitant]
     Indication: PAIN
     Dosage: 30 MG, PRN

REACTIONS (6)
  - ARTHRITIS [None]
  - BLOOD PRESSURE FLUCTUATION [None]
  - BLOOD PRESSURE INCREASED [None]
  - HOT FLUSH [None]
  - PAIN IN EXTREMITY [None]
  - WALKING DISABILITY [None]
